FAERS Safety Report 8413396-0 (Version None)
Quarter: 2012Q2

REPORT INFORMATION
  Report Type: 
  Country: None (occurrence: None)
  Receive Date: 20120605
  Receipt Date: 20120530
  Transmission Date: 20120825
  Serious: Yes (Hospitalization)
  Sender: FDA-Public Use
  Company Number: PHHY2012FR012105

PATIENT
  Sex: Female

DRUGS (12)
  1. ASPIRIN [Concomitant]
     Dosage: 1 DF, QD
     Route: 048
  2. OMEPARAZOLE BIOGARAN [Concomitant]
     Indication: BACK PAIN
     Dosage: 1 DF/DAILY
     Route: 048
     Dates: start: 20111118, end: 20111121
  3. LERCANIDIPINE [Concomitant]
     Indication: HYPERTENSION
     Dosage: 5 MG, QD
     Route: 048
  4. IRBESARTAN [Interacting]
     Indication: HYPERTENSION
     Dosage: 1 DF, QD
     Route: 048
     Dates: end: 20111121
  5. PERINDOPRIL ERBUMINE [Interacting]
     Indication: HYPERTENSION
     Dosage: 1 DF, QD
     Route: 048
     Dates: end: 20111121
  6. COLTRAMYL [Concomitant]
     Indication: BACK PAIN
     Dosage: 1 DF, TID
     Route: 048
     Dates: start: 20111118, end: 20111121
  7. NEXIUM [Concomitant]
     Dosage: 1 DF/ DAILY
     Route: 048
  8. ACETAMINOPHEN [Concomitant]
     Indication: BACK PAIN
     Dosage: 3 TO 6 DF, PRN
  9. ESIDRIX [Interacting]
     Indication: HYPERTENSION
     Dosage: 0.5 DF, QD
     Route: 048
     Dates: end: 20111121
  10. DICLOFENAC SANDOZ [Suspect]
     Indication: BACK PAIN
     Dosage: 1 DF, TID
     Route: 048
     Dates: start: 20111118, end: 20111121
  11. POLYETHYLENE GLYCOL [Concomitant]
     Dosage: 1 DF/DAILY
     Route: 048
  12. AMIODARONE HCL [Concomitant]
     Indication: ATRIAL FIBRILLATION
     Dosage: 5 DF, QW
     Route: 048
     Dates: end: 20111126

REACTIONS (8)
  - NAUSEA [None]
  - RENAL FAILURE ACUTE [None]
  - VOMITING [None]
  - DIARRHOEA [None]
  - BACK PAIN [None]
  - DECREASED APPETITE [None]
  - DRUG INTERACTION [None]
  - DEHYDRATION [None]
